FAERS Safety Report 5225894-1 (Version None)
Quarter: 2007Q1

REPORT INFORMATION
  Report Type: 
  Country: None (occurrence: None)
  Receive Date: 20070130
  Receipt Date: 20070130
  Transmission Date: 20070707
  Serious: Yes (Hospitalization)
  Sender: FDA-Public Use
  Company Number: None

PATIENT
  Age: 86 Year
  Sex: Female

DRUGS (2)
  1. METFORMIN HCL [Suspect]
     Indication: DIABETES MELLITUS NON-INSULIN-DEPENDENT
     Dosage: 50MG QD PO
     Route: 048
  2. LEVOTHYROXINE GENERIC [Suspect]
     Indication: THYROIDECTOMY
     Dosage: QD PO
     Route: 048

REACTIONS (14)
  - ANAEMIA [None]
  - ANOREXIA [None]
  - BLOOD GLUCOSE INCREASED [None]
  - DIZZINESS [None]
  - DRUG INTOLERANCE [None]
  - FALL [None]
  - FATIGUE [None]
  - HYPERHIDROSIS [None]
  - MALNUTRITION [None]
  - MUSCULOSKELETAL CHEST PAIN [None]
  - NAUSEA [None]
  - RIB FRACTURE [None]
  - VOMITING [None]
  - WEIGHT DECREASED [None]
